FAERS Safety Report 5700249-1 (Version None)
Quarter: 2008Q2

REPORT INFORMATION
  Report Type: 
  Country: None (occurrence: None)
  Receive Date: 20080410
  Receipt Date: 20080331
  Transmission Date: 20081010
  Serious: Yes (Other)
  Sender: FDA-Public Use
  Company Number: US-PFIZER INC-2008012040

PATIENT
  Age: 58 Year
  Sex: Female
  Weight: 94.3 kg

DRUGS (1)
  1. LIPITOR [Suspect]

REACTIONS (3)
  - HEPATIC STEATOSIS [None]
  - HEPATITIS C [None]
  - PANCREATITIS [None]
